FAERS Safety Report 4799714-3 (Version None)
Quarter: 2005Q4

REPORT INFORMATION
  Report Type: 
  Country: None (occurrence: None)
  Receive Date: 20051006
  Receipt Date: 20051006
  Transmission Date: 20060501
  Serious: Yes (Hospitalization)
  Sender: FDA-Public Use
  Company Number: None

PATIENT
  Age: 75 Year
  Sex: Female
  Weight: 45 kg

DRUGS (2)
  1. APAP TAB [Suspect]
  2. SEROQUEL [Suspect]

REACTIONS (10)
  - ALANINE AMINOTRANSFERASE INCREASED [None]
  - ASPARTATE AMINOTRANSFERASE INCREASED [None]
  - BLOOD PRESSURE SYSTOLIC DECREASED [None]
  - HEART RATE INCREASED [None]
  - INCONTINENCE [None]
  - LABORATORY TEST ABNORMAL [None]
  - LOSS OF CONSCIOUSNESS [None]
  - RESPIRATORY DEPRESSION [None]
  - RESPIRATORY RATE DECREASED [None]
  - VOMITING [None]
